FAERS Safety Report 8453602-X (Version None)
Quarter: 2012Q2

REPORT INFORMATION
  Report Type: 
  Country: None (occurrence: None)
  Receive Date: 20120620
  Receipt Date: 20120615
  Transmission Date: 20120825
  Serious: Yes (Hospitalization)
  Sender: FDA-Public Use
  Company Number: FR-MERCK-1206FRA00099

PATIENT
  Sex: Female

DRUGS (1)
  1. JANUMET [Suspect]
     Route: 048

REACTIONS (2)
  - HEPATITIS ACUTE [None]
  - HEPATOCELLULAR INJURY [None]
